FAERS Safety Report 23084502 (Version 2)
Quarter: 2023Q4

REPORT INFORMATION
  Report Type: Spontaneous
  Country: US (occurrence: None)
  Receive Date: 20231019
  Receipt Date: 20231031
  Transmission Date: 20240109
  Serious: Yes (Other)
  Sender: FDA-Public Use
  Company Number: 2023A232084

PATIENT
  Age: 925 Month
  Sex: Female
  Weight: 77.1 kg

DRUGS (6)
  1. FASENRA [Suspect]
     Active Substance: BENRALIZUMAB
     Indication: Asthma
     Route: 058
     Dates: start: 2018
  2. PREDNISONE [Suspect]
     Active Substance: PREDNISONE
  3. SYMBICORT [Concomitant]
     Active Substance: BUDESONIDE\FORMOTEROL FUMARATE DIHYDRATE
  4. HYDROCHLOROTHIAZIDE [Concomitant]
     Active Substance: HYDROCHLOROTHIAZIDE
  5. MONTELUKAST [Concomitant]
     Active Substance: MONTELUKAST SODIUM
  6. CLONIDINE [Concomitant]
     Active Substance: CLONIDINE

REACTIONS (8)
  - Lung disorder [Recovering/Resolving]
  - Asthma [Recovered/Resolved with Sequelae]
  - Cough [Recovered/Resolved with Sequelae]
  - Fatigue [Recovered/Resolved with Sequelae]
  - Face oedema [Recovered/Resolved with Sequelae]
  - Localised oedema [Recovered/Resolved with Sequelae]
  - Eosinophil count increased [Recovering/Resolving]
  - Product dose omission issue [Recovered/Resolved with Sequelae]

NARRATIVE: CASE EVENT DATE: 20231001
